FAERS Safety Report 8792661 (Version 2)
Quarter: 2015Q2

REPORT INFORMATION
  Report Type: Report from Study
  Country: US (occurrence: US)
  Receive Date: 20120918
  Receipt Date: 20150616
  Transmission Date: 20150821
  Serious: Yes (Death)
  Sender: FDA-Public Use
  Company Number: US-ROCHE-1129464

PATIENT
  Sex: Female
  Weight: 73.6 kg

DRUGS (12)
  1. TARCEVA [Suspect]
     Active Substance: ERLOTINIB HYDROCHLORIDE
     Indication: MONONEURITIS
  2. KYTRIL [Concomitant]
     Active Substance: GRANISETRON HYDROCHLORIDE
     Route: 042
     Dates: start: 20041213
  3. TARCEVA [Suspect]
     Active Substance: ERLOTINIB HYDROCHLORIDE
     Indication: MALIGNANT RESPIRATORY TRACT NEOPLASM
     Route: 065
  4. AVASTIN [Suspect]
     Active Substance: BEVACIZUMAB
     Indication: MALIGNANT RESPIRATORY TRACT NEOPLASM
     Route: 065
     Dates: start: 20041213
  5. CARBOPLATIN. [Concomitant]
     Active Substance: CARBOPLATIN
     Dosage: IN 150CC NS
     Route: 042
  6. DECADRON [Concomitant]
     Active Substance: DEXAMETHASONE
     Dosage: IN 100CC NS
     Route: 042
     Dates: start: 20041213
  7. BENADRYL [Concomitant]
     Active Substance: DIPHENHYDRAMINE HYDROCHLORIDE
     Route: 042
     Dates: start: 20041213
  8. TAXOL [Concomitant]
     Active Substance: PACLITAXEL
     Route: 042
     Dates: start: 20041213
  9. AVASTIN [Suspect]
     Active Substance: BEVACIZUMAB
     Indication: MONONEURITIS
  10. GEMCITABINE [Concomitant]
     Active Substance: GEMCITABINE\GEMCITABINE HYDROCHLORIDE
  11. TAXOTERE [Concomitant]
     Active Substance: DOCETAXEL
  12. ZANTAC [Concomitant]
     Active Substance: RANITIDINE HYDROCHLORIDE
     Dosage: WITH 50CC NS
     Route: 042
     Dates: start: 20041213

REACTIONS (2)
  - Death [Fatal]
  - Off label use [Unknown]
